FAERS Safety Report 10277997 (Version 1)
Quarter: 2014Q3

REPORT INFORMATION
  Report Type: Spontaneous
  Country: US (occurrence: US)
  Receive Date: 20140704
  Receipt Date: 20140704
  Transmission Date: 20150326
  Serious: No
  Sender: FDA-Public Use
  Company Number: US-JNJFOC-20140615408

PATIENT
  Age: 55 Year
  Sex: Female
  Weight: 72.58 kg

DRUGS (2)
  1. PERCOCET [Concomitant]
     Active Substance: ACETAMINOPHEN\OXYCODONE HYDROCHLORIDE
     Indication: PAIN
     Route: 065
  2. FENTANYL TRANSDERMAL SYSTEM [Suspect]
     Active Substance: FENTANYL
     Indication: PAIN
     Route: 062
     Dates: start: 201403

REACTIONS (3)
  - Incorrect dose administered [Unknown]
  - Drug ineffective [Unknown]
  - Application site pruritus [Unknown]

NARRATIVE: CASE EVENT DATE: 201403
